FAERS Safety Report 14193139 (Version 1)
Quarter: 2017Q4

REPORT INFORMATION
  Report Type: Spontaneous
  Country: US (occurrence: US)
  Receive Date: 20171115
  Receipt Date: 20171115
  Transmission Date: 20180321
  Serious: No
  Sender: FDA-Public Use
  Company Number: US-BAUSCH-BL-2016-025003

PATIENT
  Age: 10 Year
  Sex: Male

DRUGS (5)
  1. XENAZINE [Suspect]
     Active Substance: TETRABENAZINE
     Indication: CHOREA
     Dosage: ONE-HALF TABLET BY MOUTH TWICE DAILY
     Route: 048
     Dates: start: 201606
  2. XENAZINE [Suspect]
     Active Substance: TETRABENAZINE
     Route: 048
  3. XENAZINE [Suspect]
     Active Substance: TETRABENAZINE
     Route: 048
     Dates: start: 201606
  4. XENAZINE [Suspect]
     Active Substance: TETRABENAZINE
     Route: 048
     Dates: start: 2016
  5. XENAZINE [Suspect]
     Active Substance: TETRABENAZINE
     Dosage: DOSE DECREASED
     Route: 048
     Dates: start: 201609

REACTIONS (3)
  - Dyskinesia [Recovered/Resolved]
  - Prescribed overdose [Unknown]
  - Decreased activity [Recovered/Resolved]

NARRATIVE: CASE EVENT DATE: 201608
